FAERS Safety Report 4481305-5 (Version None)
Quarter: 2004Q4

REPORT INFORMATION
  Report Type: 
  Country: None (occurrence: None)
  Receive Date: 20040923
  Receipt Date: 20040528
  Transmission Date: 20050328
  Serious: No
  Sender: FDA-Public Use
  Company Number: USA030640349

PATIENT
  Age: 78 Year
  Sex: Female
  Weight: 65 kg

DRUGS (3)
  1. FORTEO [Suspect]
     Indication: OSTEOPOROSIS
     Dosage: 20 UG DAY
     Dates: start: 20030601
  2. FOSAMAX [Concomitant]
  3. CALCIUM CITRATE [Concomitant]

REACTIONS (5)
  - BLISTER [None]
  - CONTUSION [None]
  - FROSTBITE [None]
  - MUSCLE CRAMP [None]
  - SOMNOLENCE [None]
